FAERS Safety Report 5401072-8 (Version None)
Quarter: 2007Q3

REPORT INFORMATION
  Report Type: 
  Country: None (occurrence: None)
  Receive Date: 20070726
  Receipt Date: 20070715
  Transmission Date: 20080115
  Serious: Yes (Other)
  Sender: FDA-Public Use
  Company Number: 07H-163-0312889-00

PATIENT
  Age: 4 Month
  Sex: Male
  Weight: 5.7 kg

DRUGS (2)
  1. FENTANYL CITRATE [Suspect]
     Indication: INDUCTION OF ANAESTHESIA
     Dosage: 2 MCG, NOT REPORTED, NOT REPORTED
  2. KETAMINE HCL [Suspect]
     Indication: INDUCTION OF ANAESTHESIA
     Dosage: 0.5 MG/KG, NOT REPORTED, NOT REPORTED, 40-50 MCG/KG/MIN, NOT REPORTED, INFUSION

REACTIONS (3)
  - BLOOD PRESSURE DIASTOLIC DECREASED [None]
  - ELECTROCARDIOGRAM ST SEGMENT DEPRESSION [None]
  - HEART RATE INCREASED [None]
